FAERS Safety Report 7808140-1 (Version None)
Quarter: 2011Q4

REPORT INFORMATION
  Report Type: 
  Country: None (occurrence: None)
  Receive Date: 20111011
  Receipt Date: 20110926
  Transmission Date: 20120403
  Serious: Yes (Hospitalization)
  Sender: FDA-Public Use
  Company Number: DE-ROCHE-1002408

PATIENT
  Age: 79 Year
  Sex: Female

DRUGS (8)
  1. RANIBIZUMAB [Suspect]
     Indication: AGE-RELATED MACULAR DEGENERATION
     Route: 050
     Dates: start: 20080108, end: 20080108
  2. RANIBIZUMAB [Suspect]
     Route: 050
     Dates: start: 20091020, end: 20091020
  3. RANIBIZUMAB [Suspect]
     Route: 050
     Dates: start: 20090825, end: 20090825
  4. RANIBIZUMAB [Suspect]
     Route: 050
     Dates: start: 20080211, end: 20080211
  5. RANIBIZUMAB [Suspect]
     Route: 050
     Dates: start: 20080414, end: 20080414
  6. RANIBIZUMAB [Suspect]
     Route: 050
     Dates: start: 20090504, end: 20090504
  7. RANIBIZUMAB [Suspect]
     Route: 050
     Dates: start: 20090728, end: 20090728
  8. IBUPROFEN [Concomitant]
     Indication: PRODUCT USED FOR UNKNOWN INDICATION
     Dates: start: 20040101

REACTIONS (2)
  - CEREBROVASCULAR ACCIDENT [None]
  - VITREOUS HAEMORRHAGE [None]
